FAERS Safety Report 8962383 (Version 1)
Quarter: 2012Q4

REPORT INFORMATION
  Report Type: 
  Country: US (occurrence: None)
  Receive Date: 20121211
  Receipt Date: 20121211
  Transmission Date: 20130627
  Serious: Yes (Hospitalization)
  Sender: FDA-Public Use
  Company Number: None

PATIENT
  Sex: Female
  Weight: 83 kg

DRUGS (1)
  1. CARBOPLATIN [Suspect]

REACTIONS (6)
  - White blood cell count decreased [None]
  - Red blood cell count decreased [None]
  - Neutrophil count decreased [None]
  - Haemoglobin decreased [None]
  - Haematocrit decreased [None]
  - Fatigue [None]
